FAERS Safety Report 7152563-3 (Version None)
Quarter: 2010Q4

REPORT INFORMATION
  Report Type: 
  Country: None (occurrence: None)
  Receive Date: 20101213
  Receipt Date: 20101201
  Transmission Date: 20110411
  Serious: Yes (Hospitalization)
  Sender: FDA-Public Use
  Company Number: US-SANOFI-AVENTIS-2010SA040640

PATIENT
  Age: 51 Year
  Sex: Male
  Weight: 60.5 kg

DRUGS (10)
  1. ELOXATIN [Suspect]
     Indication: METASTATIC GASTRIC CANCER
     Route: 042
  2. BEVACIZUMAB [Suspect]
     Indication: METASTATIC GASTRIC CANCER
     Route: 042
     Dates: start: 20100525, end: 20100525
  3. BEVACIZUMAB [Suspect]
     Route: 042
  4. FLUOROURACIL [Suspect]
     Indication: METASTATIC GASTRIC CANCER
     Dates: start: 20100525
  5. LEUCOVORIN [Suspect]
     Indication: METASTATIC GASTRIC CANCER
  6. AMLODIPINE [Concomitant]
     Route: 065
  7. LANSOPRAZOLE [Concomitant]
     Route: 065
  8. IRON [Concomitant]
     Route: 065
  9. AVONEX [Concomitant]
     Route: 065
  10. VITAMIN B-12 [Concomitant]
     Route: 065

REACTIONS (13)
  - ACTIVATED PARTIAL THROMBOPLASTIN TIME PROLONGED [None]
  - ATELECTASIS [None]
  - CONFUSIONAL STATE [None]
  - DEHYDRATION [None]
  - DYSPNOEA [None]
  - HYPOXIA [None]
  - INCOHERENT [None]
  - LUNG INFILTRATION [None]
  - LUNG NEOPLASM [None]
  - LYMPHADENOPATHY MEDIASTINAL [None]
  - MENTAL STATUS CHANGES [None]
  - PULMONARY EMBOLISM [None]
  - PYREXIA [None]
